FAERS Safety Report 8851694 (Version 4)
Quarter: 2013Q1

REPORT INFORMATION
  Report Type: Spontaneous
  Country: US (occurrence: US)
  Receive Date: 20121022
  Receipt Date: 20130104
  Transmission Date: 20140127
  Serious: Yes (Other)
  Sender: FDA-Public Use
  Company Number: US-JNJFOC-20121007231

PATIENT
  Sex: Female
  Weight: 49.44 kg

DRUGS (5)
  1. REMICADE [Suspect]
     Indication: CROHN^S DISEASE
     Route: 042
     Dates: start: 20100913
  2. 6-MP [Concomitant]
     Dates: start: 20100729, end: 20120301
  3. IRON [Concomitant]
  4. OMEPRAZOLE [Concomitant]
  5. LOESTRIN [Concomitant]

REACTIONS (1)
  - Squamous cell carcinoma [Not Recovered/Not Resolved]
